FAERS Safety Report 14331791 (Version 1)
Quarter: 2017Q4

REPORT INFORMATION
  Report Type: Report from Study
  Country: PH (occurrence: PH)
  Receive Date: 20171228
  Receipt Date: 20171228
  Transmission Date: 20180321
  Serious: Yes (Hospitalization)
  Sender: FDA-Public Use
  Company Number: PH-ASTELLAS-2010001179

PATIENT
  Age: 61 Year
  Sex: Male

DRUGS (4)
  1. FERROUS SULFATE. [Concomitant]
     Active Substance: FERROUS SULFATE
     Indication: PRODUCT USED FOR UNKNOWN INDICATION
     Route: 065
  2. ERLOTINIB [Suspect]
     Active Substance: ERLOTINIB
     Indication: NON-SMALL CELL LUNG CANCER
     Dosage: 150 MG, ONCE DAILY(LAST DOSE PRIOR TO SAE: 22 MARCH 2010, FREQ: D15-28)
     Route: 048
     Dates: start: 20100111
  3. GEMCITABINE [Suspect]
     Active Substance: GEMCITABINE\GEMCITABINE HYDROCHLORIDE
     Indication: NON-SMALL CELL LUNG CANCER
     Dosage: 2238 MG, UNKNOWN FREQ.(FORM: VIAL, FREQ: C4D1.  LAST DOSE PRIOR TO SAE: 23 MARCH 2010.  TEMPORARILY)
     Route: 042
     Dates: start: 20091228, end: 20100330
  4. CARBOPLATIN. [Suspect]
     Active Substance: CARBOPLATIN
     Indication: NON-SMALL CELL LUNG CANCER
     Dosage: 495 MG, UNKNOWN FREQ.(FORM: VIAL,  FREQ: C4D1.LAST DOSE PRIOR TO SAE: 23 MARCH 2010.)
     Route: 042
     Dates: start: 20091228

REACTIONS (1)
  - Anaemia [Recovering/Resolving]

NARRATIVE: CASE EVENT DATE: 20100330
